FAERS Safety Report 23690781 (Version 1)
Quarter: 2024Q2

REPORT INFORMATION
  Report Type: Spontaneous
  Country: US (occurrence: US)
  Receive Date: 20240401
  Receipt Date: 20240401
  Transmission Date: 20240715
  Serious: No
  Sender: FDA-Public Use
  Company Number: US-APOTEX-2024AP000958

PATIENT
  Age: 99 Year
  Sex: Female

DRUGS (1)
  1. BRIMONIDINE TARTRATE [Suspect]
     Active Substance: BRIMONIDINE TARTRATE
     Indication: Glaucoma
     Dosage: 2 GTT DROPS, BID
     Route: 047

REACTIONS (6)
  - Product container issue [Unknown]
  - Product closure removal difficult [Unknown]
  - Product delivery mechanism issue [Unknown]
  - Incorrect dose administered by product [Unknown]
  - Extra dose administered [Unknown]
  - No adverse event [Unknown]
